FAERS Safety Report 5874633-X (Version None)
Quarter: 2008Q3

REPORT INFORMATION
  Report Type: 
  Country: None (occurrence: None)
  Receive Date: 20080902
  Receipt Date: 20070806
  Transmission Date: 20090109
  Serious: Yes (Life-Threatening, Hospitalization, Disabling)
  Sender: FDA-Public Use
  Company Number: 2008S1011135

PATIENT
  Age: 69 Year
  Sex: Female

DRUGS (11)
  1. CLARITHROMYCIN [Suspect]
     Indication: DRUG USE FOR UNKNOWN INDICATION
  2. LIPITOR [Suspect]
     Indication: HYPERCHOLESTEROLAEMIA
     Dosage: 40 MG; ORAL; 80 MG; ORAL
     Route: 048
     Dates: start: 20040619, end: 20041108
  3. LIPITOR [Suspect]
     Indication: HYPERCHOLESTEROLAEMIA
     Dosage: 40 MG; ORAL; 80 MG; ORAL
     Route: 048
     Dates: start: 20040619, end: 20060120
  4. LIPITOR [Suspect]
     Indication: HYPERCHOLESTEROLAEMIA
     Dosage: 40 MG; ORAL; 80 MG; ORAL
     Route: 048
     Dates: start: 20041108, end: 20060120
  5. ASPIRIN [Concomitant]
  6. BISOPROLOL FUMARATE [Concomitant]
  7. LANSOPRAZOLE [Concomitant]
  8. NICORANDIL (NICORANDIL) [Concomitant]
  9. PENICILLIN V (PHENOXYMETHYLPENICILLN) [Concomitant]
  10. PLAVIX [Concomitant]
  11. RAMIPRIL [Concomitant]

REACTIONS (7)
  - BLOOD BILIRUBIN INCREASED [None]
  - DRUG INTERACTION [None]
  - INFLUENZA LIKE ILLNESS [None]
  - LIVER FUNCTION TEST ABNORMAL [None]
  - LOWER RESPIRATORY TRACT INFECTION [None]
  - RENAL FAILURE ACUTE [None]
  - RHABDOMYOLYSIS [None]
